FAERS Safety Report 14655951 (Version 1)
Quarter: 2018Q1

REPORT INFORMATION
  Report Type: Spontaneous
  Country: US (occurrence: US)
  Receive Date: 20180317
  Receipt Date: 20180317
  Transmission Date: 20180509
  Serious: Yes (Life-Threatening)
  Sender: FDA-Public Use
  Company Number: None

PATIENT
  Age: 48 Year
  Sex: Male
  Weight: 71.22 kg

DRUGS (3)
  1. LURASIDONE [Suspect]
     Active Substance: LURASIDONE
  2. LORAZEPAM. [Suspect]
     Active Substance: LORAZEPAM
  3. HALOPERIDOL. [Suspect]
     Active Substance: HALOPERIDOL

REACTIONS (6)
  - Paranoia [None]
  - Hallucination [None]
  - Delusion [None]
  - Anxiety [None]
  - Pancytopenia [None]
  - Panic disorder [None]

NARRATIVE: CASE EVENT DATE: 20180228
